FAERS Safety Report 16500441 (Version 1)
Quarter: 2019Q3

REPORT INFORMATION
  Report Type: Spontaneous
  Country: US (occurrence: US)
  Receive Date: 20190628
  Receipt Date: 20190628
  Transmission Date: 20191004
  Serious: Yes (Life-Threatening, Hospitalization)
  Sender: FDA-Public Use
  Company Number: None

PATIENT
  Age: 42 Year
  Sex: Female
  Weight: 108.6 kg

DRUGS (3)
  1. ADO-TRASTUZUMAB EMTANSINE 160 MG SOLR [Suspect]
     Active Substance: ADO-TRASTUZUMAB EMTANSINE
     Indication: BREAST CANCER RECURRENT
     Dosage: ?          OTHER FREQUENCY:ONCE;?
     Route: 017
     Dates: start: 20190620, end: 20190620
  2. ADO-TRASTUZUMAB EMTANSINE 160 MG SOLR [Suspect]
     Active Substance: ADO-TRASTUZUMAB EMTANSINE
     Indication: BREAST CANCER METASTATIC
     Dosage: ?          OTHER FREQUENCY:ONCE;?
     Route: 017
     Dates: start: 20190620, end: 20190620
  3. ADO-TRASTUZUMAB EMTANSINE 160 MG SOLR [Suspect]
     Active Substance: ADO-TRASTUZUMAB EMTANSINE
     Indication: HER-2 POSITIVE BREAST CANCER
     Dosage: ?          OTHER FREQUENCY:ONCE;?
     Route: 017
     Dates: start: 20190620, end: 20190620

REACTIONS (9)
  - Acidosis [None]
  - Transfusion [None]
  - Packed red blood cell transfusion [None]
  - Abdominal pain [None]
  - Hepatic artery thrombosis [None]
  - Anaemia [None]
  - Renal replacement therapy [None]
  - Platelet transfusion [None]
  - Coagulation factor VII level decreased [None]

NARRATIVE: CASE EVENT DATE: 20190620
